FAERS Safety Report 8125553-1 (Version None)
Quarter: 2012Q1

REPORT INFORMATION
  Report Type: 
  Country: None (occurrence: None)
  Receive Date: 20120209
  Receipt Date: 20120207
  Transmission Date: 20120608
  Serious: Yes (Other)
  Sender: FDA-Public Use
  Company Number: US-PFIZER INC-2012034071

PATIENT
  Sex: Female
  Weight: 68.027 kg

DRUGS (3)
  1. CELEBREX [Concomitant]
     Indication: ARTHRALGIA
     Dosage: UNK
     Route: 048
  2. XANAX [Concomitant]
     Indication: SLEEP DISORDER
     Dosage: 0.25 MG, AS NEEDED
     Route: 048
  3. CHANTIX [Suspect]
     Indication: SMOKING CESSATION THERAPY
     Dosage: UNK
     Route: 048

REACTIONS (2)
  - LIVER DISORDER [None]
  - FLATULENCE [None]
